FAERS Safety Report 12629605 (Version 1)
Quarter: 2016Q3

REPORT INFORMATION
  Report Type: Spontaneous
  Country: CH (occurrence: CH)
  Receive Date: 20160808
  Receipt Date: 20160808
  Transmission Date: 20161109
  Serious: Yes (Hospitalization)
  Sender: FDA-Public Use
  Company Number: CH-PFIZER INC-2016366298

PATIENT
  Age: 42 Year
  Sex: Female

DRUGS (9)
  1. AMLODIPINE BESILATE [Suspect]
     Active Substance: AMLODIPINE BESYLATE
     Indication: ESSENTIAL HYPERTENSION
     Dosage: 5 MG, 1X/DAY
     Route: 048
     Dates: start: 20150901, end: 20160222
  2. INSULATARD /00646002/ [Suspect]
     Active Substance: INSULIN HUMAN
     Indication: GESTATIONAL DIABETES
     Dosage: 8 IU, 1X/DAY
     Dates: start: 201512, end: 20160105
  3. PERINDOPRIL [Suspect]
     Active Substance: PERINDOPRIL
     Indication: ESSENTIAL HYPERTENSION
     Dosage: 5 MG, 1X/DAY
     Route: 048
     Dates: start: 20150624, end: 20150831
  4. CELESTONE CRONODOSE [Suspect]
     Active Substance: BETAMETHASONE
     Indication: IMMATURE RESPIRATORY SYSTEM
     Dosage: UNK
     Route: 030
     Dates: start: 20160111, end: 20160112
  5. AMLODIPINE BESILATE [Suspect]
     Active Substance: AMLODIPINE BESYLATE
     Dosage: 10 MG, 1X/DAY
     Route: 048
     Dates: start: 20160223, end: 20160225
  6. INSULATARD /00646002/ [Suspect]
     Active Substance: INSULIN HUMAN
     Dosage: 14 IU, 1X/DAY
     Dates: start: 20160106, end: 20160220
  7. INDAPAMIDE. [Suspect]
     Active Substance: INDAPAMIDE
     Indication: ESSENTIAL HYPERTENSION
     Dosage: 1.25 MG, 1X/DAY
     Route: 048
     Dates: start: 20150624, end: 20150831
  8. ASPIRIN CARDIO [Suspect]
     Active Substance: ASPIRIN
     Dosage: UNK
     Route: 048
     Dates: start: 20150920, end: 201601
  9. INSULATARD /00646002/ [Suspect]
     Active Substance: INSULIN HUMAN
     Dosage: UNK
     Dates: start: 20160221, end: 20160225

REACTIONS (2)
  - Gestational diabetes [Recovered/Resolved]
  - Premature separation of placenta [Recovered/Resolved]

NARRATIVE: CASE EVENT DATE: 20151223
